FAERS Safety Report 4365600-6 (Version None)
Quarter: 2004Q2

REPORT INFORMATION
  Report Type: 
  Country: None (occurrence: None)
  Receive Date: 20040526
  Receipt Date: 20040311
  Transmission Date: 20050107
  Serious: Yes (Disabling)
  Sender: FDA-Public Use
  Company Number: US-MERCK-0403USA01237

PATIENT
  Age: 40 Year
  Sex: Female
  Weight: 130 kg

DRUGS (10)
  1. ASPIRIN [Concomitant]
     Route: 065
     Dates: start: 19980101, end: 20020101
  2. CELEBREX [Concomitant]
     Indication: ARTHRITIS
     Route: 065
     Dates: start: 19980101, end: 20020101
  3. ANTIVERT [Concomitant]
     Indication: VERTIGO
     Route: 065
  4. RELAFEN [Concomitant]
     Indication: ARTHRALGIA
     Route: 065
  5. NAPROXEN [Concomitant]
     Route: 065
     Dates: start: 19980101, end: 20020101
  6. VIOXX [Suspect]
     Indication: RHEUMATOID ARTHRITIS
     Route: 048
     Dates: start: 20000301, end: 20020201
  7. VIOXX [Suspect]
     Route: 048
     Dates: start: 20000301, end: 20020201
  8. VIOXX [Suspect]
     Route: 048
     Dates: start: 20000301, end: 20020201
  9. MERIDIA [Concomitant]
     Indication: WEIGHT
     Route: 065
  10. AMBIEN [Concomitant]
     Indication: SLEEP DISORDER
     Route: 065

REACTIONS (53)
  - ACROCHORDON [None]
  - ACUTE SINUSITIS [None]
  - ANGINA PECTORIS [None]
  - ANHEDONIA [None]
  - ANXIETY [None]
  - APATHY [None]
  - APPETITE DISORDER [None]
  - ARTHRALGIA [None]
  - ASTHENIA [None]
  - BACK INJURY [None]
  - BACK PAIN [None]
  - BRONCHITIS CHRONIC [None]
  - CARDIAC DISORDER [None]
  - CARDIAC FAILURE CONGESTIVE [None]
  - CHEST PAIN [None]
  - CONTUSION [None]
  - DEPRESSION [None]
  - DISTURBANCE IN ATTENTION [None]
  - DRUG EFFECT DECREASED [None]
  - ELECTROCARDIOGRAM T WAVE INVERSION [None]
  - EMOTIONAL DISTRESS [None]
  - EXOSTOSIS [None]
  - FATIGUE [None]
  - FEELING ABNORMAL [None]
  - GASTRIC DISORDER [None]
  - GASTRIC ULCER [None]
  - HEADACHE [None]
  - HYPERTENSION [None]
  - HYPOAESTHESIA [None]
  - INFLUENZA [None]
  - INTERVERTEBRAL DISC DEGENERATION [None]
  - INTERVERTEBRAL DISC PROTRUSION [None]
  - JOINT EFFUSION [None]
  - JOINT SWELLING [None]
  - LIGAMENT INJURY [None]
  - LOCALISED OSTEOARTHRITIS [None]
  - MAJOR DEPRESSION [None]
  - MENISCUS LESION [None]
  - MUSCLE STRAIN [None]
  - MYALGIA [None]
  - OSTEOARTHRITIS [None]
  - PAIN [None]
  - PARAESTHESIA [None]
  - POST PROCEDURAL COMPLICATION [None]
  - PRESCRIBED OVERDOSE [None]
  - RADICULOPATHY [None]
  - RESPIRATORY SYNCYTIAL VIRUS INFECTION [None]
  - ROTATOR CUFF SYNDROME [None]
  - SCAR [None]
  - SLEEP DISORDER [None]
  - SOCIAL AVOIDANT BEHAVIOUR [None]
  - SPONDYLOSIS [None]
  - TENDERNESS [None]
